FAERS Safety Report 8490977-X (Version None)
Quarter: 2012Q2

REPORT INFORMATION
  Report Type: 
  Country: None (occurrence: None)
  Receive Date: 20120625
  Receipt Date: 20120613
  Transmission Date: 20120825
  Serious: Yes (Other)
  Sender: FDA-Public Use
  Company Number: 2012PROUSA01526

PATIENT
  Age: 76 Year
  Sex: Male

DRUGS (5)
  1. PROVENGE [Suspect]
     Indication: PROSTATE CANCER
     Dosage: 250 ML, SINGLE, INTRAVENOUS; 250 ML, SINGLE, INTRAVENOUS; 250ML, SINGLE, INTRAVENOUS
     Route: 042
     Dates: start: 20120406, end: 20120406
  2. PROVENGE [Suspect]
     Indication: PROSTATE CANCER
     Dosage: 250 ML, SINGLE, INTRAVENOUS; 250 ML, SINGLE, INTRAVENOUS; 250ML, SINGLE, INTRAVENOUS
     Route: 042
     Dates: start: 20120420, end: 20120420
  3. PROVENGE [Suspect]
     Indication: PROSTATE CANCER
     Dosage: 250 ML, SINGLE, INTRAVENOUS; 250 ML, SINGLE, INTRAVENOUS; 250ML, SINGLE, INTRAVENOUS
     Route: 042
     Dates: start: 20120504, end: 20120504
  4. PROVENGE [Suspect]
  5. PROVENGE [Suspect]

REACTIONS (5)
  - ASTHENIA [None]
  - WEIGHT DECREASED [None]
  - MALAISE [None]
  - OXYGEN SATURATION DECREASED [None]
  - DYSPNOEA [None]
